FAERS Safety Report 7690860 (Version 2)
Quarter: 2015Q2

REPORT INFORMATION
  Report Type: Spontaneous
  Country: US (occurrence: US)
  Receive Date: 20101203
  Receipt Date: 20150511
  Transmission Date: 20150821
  Serious: Yes (Other)
  Sender: FDA-Public Use
  Company Number: US-JNJFOC-20101100871

PATIENT
  Sex: Female

DRUGS (1)
  1. LEVAQUIN [Suspect]
     Active Substance: LEVOFLOXACIN
     Indication: CHRONIC SINUSITIS
     Route: 048

REACTIONS (5)
  - Rotator cuff syndrome [Unknown]
  - Rash [Unknown]
  - Synovitis [Unknown]
  - Foot deformity [Unknown]
  - Tendonitis [Not Recovered/Not Resolved]
